FAERS Safety Report 21632288 (Version 1)
Quarter: 2022Q4

REPORT INFORMATION
  Report Type: Spontaneous
  Country: US (occurrence: US)
  Receive Date: 20221123
  Receipt Date: 20221123
  Transmission Date: 20230112
  Serious: Yes (Other)
  Sender: FDA-Public Use
  Company Number: US-ABBVIE-4191070

PATIENT
  Sex: Female

DRUGS (1)
  1. HUMIRA [Suspect]
     Active Substance: ADALIMUMAB
     Indication: Hidradenitis
     Dosage: FORM STRENGTH 40 MILLIGRAM
     Route: 058
     Dates: start: 2019, end: 2022

REACTIONS (5)
  - Gastrectomy [Unknown]
  - Arthralgia [Unknown]
  - Rash [Unknown]
  - Adverse drug reaction [Unknown]
  - Lupus-like syndrome [Unknown]
